FAERS Safety Report 4376066-4 (Version None)
Quarter: 2004Q2

REPORT INFORMATION
  Report Type: 
  Country: None (occurrence: None)
  Receive Date: 20040611
  Receipt Date: 20040602
  Transmission Date: 20050107
  Serious: Yes (Death, Hospitalization)
  Sender: FDA-Public Use
  Company Number: US-BRISTOL-MYERS SQUIBB COMPANY-12602363

PATIENT
  Age: 77 Year
  Sex: Male
  Weight: 76 kg

DRUGS (4)
  1. TAXOL [Suspect]
     Indication: PROSTATE CANCER
     Dates: start: 20040518, end: 20040528
  2. VP-16 [Suspect]
     Indication: PROSTATE CANCER
     Route: 048
     Dates: start: 20040511, end: 20040528
  3. EMCYT [Suspect]
     Indication: PROSTATE CANCER
     Dates: start: 20040528, end: 20040528
  4. COUMADIN [Concomitant]

REACTIONS (4)
  - DEATH [None]
  - NEUTROPENIA [None]
  - SYNCOPE [None]
  - WHITE BLOOD CELL COUNT DECREASED [None]
